FAERS Safety Report 4550689-1 (Version None)
Quarter: 2004Q4

REPORT INFORMATION
  Report Type: 
  Country: None (occurrence: None)
  Receive Date: 20041217
  Receipt Date: 20041029
  Transmission Date: 20050328
  Serious: No
  Sender: FDA-Public Use
  Company Number: 2004-BP-10907BP(0)

PATIENT
  Age: 73 Year
  Sex: Male

DRUGS (3)
  1. SPIRIVA [Suspect]
     Indication: CHRONIC OBSTRUCTIVE AIRWAYS DISEASE
     Dosage: 18 MCG (18 MCG) IH
     Route: 055
     Dates: start: 20040801
  2. SEREVENT [Concomitant]
  3. ALBUTEROL [Concomitant]

REACTIONS (3)
  - ARTHRALGIA [None]
  - DRY MOUTH [None]
  - DYSPNOEA EXERTIONAL [None]
